FAERS Safety Report 11635418 (Version 3)
Quarter: 2015Q4

REPORT INFORMATION
  Report Type: Spontaneous
  Country: US (occurrence: US)
  Receive Date: 20151016
  Receipt Date: 20151120
  Transmission Date: 20160304
  Serious: No
  Sender: FDA-Public Use
  Company Number: US-009507513-1510USA004203

PATIENT
  Age: 27 Year
  Sex: Female
  Weight: 87.98 kg

DRUGS (2)
  1. NEXPLANON [Suspect]
     Active Substance: ETONOGESTREL
     Dosage: UNK
     Route: 059
     Dates: start: 20151023
  2. NEXPLANON [Suspect]
     Active Substance: ETONOGESTREL
     Indication: CONTRACEPTION
     Dosage: UNK
     Route: 058
     Dates: start: 20150923, end: 20151023

REACTIONS (4)
  - Anxiety [Not Recovered/Not Resolved]
  - Implant site pain [Recovered/Resolved]
  - Metrorrhagia [Not Recovered/Not Resolved]
  - Device kink [Recovered/Resolved]

NARRATIVE: CASE EVENT DATE: 2015
